FAERS Safety Report 8630055 (Version 4)
Quarter: 2012Q4

REPORT INFORMATION
  Report Type: Report from Study
  Country: US (occurrence: US)
  Receive Date: 20120622
  Receipt Date: 20121127
  Transmission Date: 20130627
  Serious: Yes (Hospitalization)
  Sender: FDA-Public Use
  Company Number: US-JNJFOC-20120607644

PATIENT
  Age: 13 Year
  Sex: Female
  Weight: 37.5 kg

DRUGS (18)
  1. REMICADE [Suspect]
     Indication: COLITIS ULCERATIVE
     Route: 042
     Dates: end: 20120217
  2. ELAVIL [Concomitant]
  3. VIACTIV CALCIUM CHEWS [Concomitant]
  4. 5-ASA [Concomitant]
     Route: 048
  5. 5-ASA [Concomitant]
     Route: 054
  6. PREVACID [Concomitant]
  7. ZYRTEC [Concomitant]
  8. IRON [Concomitant]
  9. ANTIBIOTICS NOS [Concomitant]
     Indication: INFLAMMATORY BOWEL DISEASE
  10. MULTIVITAMINS [Concomitant]
  11. VITAMIN K [Concomitant]
  12. PREDNISONE [Concomitant]
  13. MORPHINE [Concomitant]
  14. ZOFRAN [Concomitant]
  15. OXYCODONE [Concomitant]
  16. OFIRMEV [Concomitant]
  17. TORADOL [Concomitant]
  18. TYLENOL [Concomitant]

REACTIONS (1)
  - Colitis ulcerative [Recovered/Resolved]
